FAERS Safety Report 7825184-4 (Version None)
Quarter: 2011Q4

REPORT INFORMATION
  Report Type: 
  Country: None (occurrence: None)
  Receive Date: 20111019
  Receipt Date: 20111014
  Transmission Date: 20120403
  Serious: No
  Sender: FDA-Public Use
  Company Number: US-PFIZER INC-2011246553

PATIENT
  Sex: Female
  Weight: 72.562 kg

DRUGS (6)
  1. ZYVOX [Suspect]
     Indication: LOCALISED INFECTION
     Dosage: 600 MG, 2X/DAY
     Route: 048
     Dates: start: 20111004
  2. PLAVIX [Concomitant]
     Indication: LOCALISED INFECTION
     Dosage: 75 MG
     Route: 048
  3. BENADRYL [Concomitant]
     Indication: HYPERSENSITIVITY
     Dosage: UNK, AS NEEDED
  4. DIOVAN HCT [Concomitant]
     Indication: HYPERTENSION
     Dosage: 160/ 12.5 MG, UNK
  5. METOPROLOL [Concomitant]
     Indication: HYPERTENSION
     Dosage: 50 MG
  6. INSULIN LISPRO [Concomitant]
     Indication: DIABETES MELLITUS
     Dosage: UNK, 2X/DAY

REACTIONS (3)
  - SENSORY DISTURBANCE [None]
  - OROPHARYNGEAL PAIN [None]
  - PRURITUS [None]
